FAERS Safety Report 13295623 (Version 1)
Quarter: 2017Q1

REPORT INFORMATION
  Report Type: Spontaneous
  Country: DE (occurrence: DE)
  Receive Date: 20170303
  Receipt Date: 20170303
  Transmission Date: 20170428
  Serious: Yes (Other)
  Sender: FDA-Public Use
  Company Number: GXKR2017DE001403

PATIENT

DRUGS (1)
  1. CIPROHEXAL (CIPROFLOXACIN) [Suspect]
     Active Substance: CIPROFLOXACIN
     Indication: CYSTITIS
     Dosage: 2 TABLETTEN PRO TAG. ALLE 12 STUNDEN EINE TABLETTE.
     Route: 048
     Dates: start: 20170201, end: 20170203

REACTIONS (4)
  - Photosensitivity reaction [Recovered/Resolved]
  - Meningitis [Recovered/Resolved]
  - Neck pain [Recovered/Resolved]
  - Headache [Recovered/Resolved]

NARRATIVE: CASE EVENT DATE: 20170202
